FAERS Safety Report 20339153 (Version 1)
Quarter: 2022Q1

REPORT INFORMATION
  Report Type: Spontaneous
  Country: SA (occurrence: SA)
  Receive Date: 20220117
  Receipt Date: 20220117
  Transmission Date: 20220423
  Serious: Yes (Other)
  Sender: FDA-Public Use
  Company Number: SA-SUN PHARMACEUTICAL INDUSTRIES LTD-2022RR-323691

PATIENT
  Age: 25 Year
  Sex: Female

DRUGS (5)
  1. LEVETIRACETAM [Suspect]
     Active Substance: LEVETIRACETAM
     Indication: Generalised tonic-clonic seizure
     Dosage: 20 MG/KG
     Route: 065
  2. NIMODIPINE [Suspect]
     Active Substance: NIMODIPINE
     Indication: Reversible cerebral vasoconstriction syndrome
     Dosage: UNK
     Route: 065
  3. LABETALOL [Suspect]
     Active Substance: LABETALOL\LABETALOL HYDROCHLORIDE
     Indication: Hypertension
     Dosage: UNK
     Route: 065
  4. MAGNESIUM SULFATE [Suspect]
     Active Substance: MAGNESIUM SULFATE
     Indication: Eclampsia
     Dosage: UNK
     Route: 065
  5. PROPOFOL [Concomitant]
     Active Substance: PROPOFOL
     Indication: Sedation
     Dosage: UNK
     Route: 065

REACTIONS (2)
  - Drug ineffective [Unknown]
  - Exposure during pregnancy [Unknown]
